FAERS Safety Report 6861888-8 (Version None)
Quarter: 2010Q3

REPORT INFORMATION
  Report Type: 
  Country: None (occurrence: None)
  Receive Date: 20100721
  Receipt Date: 20100706
  Transmission Date: 20110219
  Serious: Yes (Hospitalization)
  Sender: FDA-Public Use
  Company Number: US-MYLANLABS-2010S1011961

PATIENT
  Age: 71 Year
  Sex: Male

DRUGS (18)
  1. AMIODARONE HCL [Suspect]
     Indication: ATRIAL FIBRILLATION
     Route: 040
  2. AMIODARONE HCL [Interacting]
     Indication: VENTRICULAR TACHYCARDIA
     Route: 040
  3. AMIODARONE HCL [Interacting]
     Indication: SUPRAVENTRICULAR TACHYCARDIA
     Route: 040
  4. AMIODARONE HCL [Interacting]
     Route: 040
  5. AMIODARONE HCL [Interacting]
     Route: 041
  6. AMIODARONE HCL [Interacting]
     Route: 041
  7. AMIODARONE HCL [Interacting]
     Route: 041
  8. AMIODARONE HCL [Interacting]
     Route: 041
  9. AMIODARONE HCL [Interacting]
     Route: 041
  10. AMIODARONE HCL [Interacting]
     Route: 041
  11. AMIODARONE HCL [Interacting]
     Route: 041
  12. AMIODARONE HCL [Interacting]
     Route: 041
  13. AMIODARONE HCL [Interacting]
     Route: 048
  14. AMIODARONE HCL [Interacting]
     Route: 048
  15. AMIODARONE HCL [Interacting]
     Route: 048
  16. AMIODARONE HCL [Interacting]
     Route: 048
  17. TACROLIMUS [Interacting]
     Indication: IMMUNOSUPPRESSION
     Route: 065
  18. DOBUTAMINE HCL [Concomitant]
     Indication: CARDIAC FAILURE
     Route: 041

REACTIONS (4)
  - DRUG INTERACTION [None]
  - ELECTROCARDIOGRAM QT PROLONGED [None]
  - TORSADE DE POINTES [None]
  - VENTRICULAR FIBRILLATION [None]
